FAERS Safety Report 6359361-9 (Version None)
Quarter: 2009Q3

REPORT INFORMATION
  Report Type: 
  Country: None (occurrence: None)
  Receive Date: 20090914
  Receipt Date: 20090909
  Transmission Date: 20100115
  Serious: Yes (Death)
  Sender: FDA-Public Use
  Company Number: 2009SP024153

PATIENT
  Age: 58 Year
  Sex: Female

DRUGS (1)
  1. ORGARAN [Suspect]
     Indication: ANTICOAGULANT THERAPY
     Dosage: 3000 IU; TIW; SC
     Route: 058
     Dates: end: 20090430

REACTIONS (3)
  - CEREBRAL HAEMATOMA [None]
  - COMA [None]
  - INTRACRANIAL PRESSURE INCREASED [None]
